FAERS Safety Report 22049754 (Version 2)
Quarter: 2025Q2

REPORT INFORMATION
  Report Type: Spontaneous
  Country: AU (occurrence: AU)
  Receive Date: 20230301
  Receipt Date: 20250620
  Transmission Date: 20250716
  Serious: Yes (Other)
  Sender: ORGANON
  Company Number: AU-ORGANON-O2302AUS002230

PATIENT
  Age: 64 Year
  Sex: Female

DRUGS (1)
  1. EZETIMIBE [Suspect]
     Active Substance: EZETIMIBE

REACTIONS (4)
  - Mental impairment [Unknown]
  - Fatigue [Unknown]
  - Paraesthesia [Unknown]
  - Rash [Unknown]
